FAERS Safety Report 8886951 (Version 1)
Quarter: 2012Q4

REPORT INFORMATION
  Report Type: 
  Country: US (occurrence: US)
  Receive Date: 20121105
  Receipt Date: 20121105
  Transmission Date: 20130627
  Serious: Yes (Other)
  Sender: FDA-Public Use
  Company Number: US-ASTRAZENECA-2012SE82235

PATIENT
  Sex: Female

DRUGS (11)
  1. PRILOSEC [Suspect]
     Route: 048
  2. CRESTOR [Suspect]
     Route: 048
  3. LYRICA [Suspect]
  4. CHANTIX [Suspect]
  5. CELEBREX [Suspect]
  6. FELDENE [Suspect]
  7. AMITRIPTYLINE HCL [Suspect]
  8. SIMVASTATIN [Suspect]
  9. CIPRODEX [Suspect]
     Route: 001
  10. VITAMIN C [Suspect]
     Route: 048
  11. VITAMIN D3 [Suspect]
     Route: 048

REACTIONS (13)
  - Paralysis [Unknown]
  - Skin lesion [Unknown]
  - Hypertension [Unknown]
  - Pain in extremity [Unknown]
  - Back pain [Unknown]
  - Dizziness [Unknown]
  - Tremor [Unknown]
  - Blood cholesterol increased [Unknown]
  - Impaired fasting glucose [Unknown]
  - Vertigo [Unknown]
  - Chronic obstructive pulmonary disease [Unknown]
  - Oedema [Unknown]
  - Nausea [Unknown]
